FAERS Safety Report 9158291 (Version 2)
Quarter: 2013Q2

REPORT INFORMATION
  Report Type: Spontaneous
  Country: BR (occurrence: BR)
  Receive Date: 20130312
  Receipt Date: 20130422
  Transmission Date: 20140414
  Serious: Yes (Other)
  Sender: FDA-Public Use
  Company Number: PHHY2012BR096913

PATIENT
  Age: 78 Year
  Sex: Female
  Weight: 75 kg

DRUGS (8)
  1. CODATEN [Suspect]
     Indication: PAIN
     Dosage: 1 DF, Q8H
  2. CODATEN [Suspect]
     Dosage: 1 DF, DAILY (FOR AT LEAST 3 MONTHS)
  3. CODATEN [Suspect]
     Dosage: 1 DF, Q6H
  4. PURAN T4 [Concomitant]
     Indication: THYROID DISORDER
     Dosage: 1 DF, DAILY
     Route: 048
  5. ARADOIS [Concomitant]
     Indication: HYPERTENSION
     Dosage: 2 DF, DAILY
     Route: 048
  6. ZOLOFT [Concomitant]
     Indication: DEPRESSION
     Dosage: 1 DF, DAILY
     Route: 048
  7. MOTILIUM ^BYK GULDEN^ [Concomitant]
     Indication: GASTRIC DISORDER
     Dosage: 1 DF, DAILY
     Route: 048
  8. RIVOTRIL [Concomitant]
     Indication: ANXIETY
     Dosage: 1 DF, DAILY
     Route: 048

REACTIONS (12)
  - Thyroid mass [Recovered/Resolved]
  - Arthritis [Not Recovered/Not Resolved]
  - Rheumatic disorder [Not Recovered/Not Resolved]
  - Fall [Recovering/Resolving]
  - Abasia [Not Recovered/Not Resolved]
  - Spinal disorder [Recovering/Resolving]
  - Osteoporosis [Unknown]
  - Head injury [Recovering/Resolving]
  - Depression [Not Recovered/Not Resolved]
  - Spinal pain [Not Recovered/Not Resolved]
  - Anxiety [Not Recovered/Not Resolved]
  - Pain [Recovering/Resolving]
